FAERS Safety Report 8925396 (Version 2)
Quarter: 2012Q4

REPORT INFORMATION
  Report Type: 
  Country: ES (occurrence: DE)
  Receive Date: 20121126
  Receipt Date: 20121214
  Transmission Date: 20130627
  Serious: Yes (Other)
  Sender: FDA-Public Use
  Company Number: DE-FRI-1000040600

PATIENT
  Age: 62 Year
  Sex: Female

DRUGS (3)
  1. ACLIDINIUM BROMIDE [Suspect]
     Indication: CHRONIC OBSTRUCTIVE PULMONARY DISEASE
     Dosage: 644 mcg
     Dates: start: 20121023, end: 20121109
  2. FORMOTEROL [Concomitant]
     Indication: CHRONIC OBSTRUCTIVE PULMONARY DISEASE
     Dosage: 2 DF
     Dates: start: 2011, end: 2012
  3. BUDIAIR [Concomitant]
     Indication: CHRONIC OBSTRUCTIVE PULMONARY DISEASE
     Dosage: 4 DF
     Dates: start: 2011, end: 2012

REACTIONS (1)
  - Haemoptysis [Recovered/Resolved]
